FAERS Safety Report 23864732 (Version 1)
Quarter: 2024Q2

REPORT INFORMATION
  Report Type: Spontaneous
  Country: US (occurrence: US)
  Receive Date: 20240516
  Receipt Date: 20240516
  Transmission Date: 20240716
  Serious: No
  Sender: FDA-Public Use
  Company Number: US-GREER Laboratories, Inc.-2157105

PATIENT
  Age: 34 Year
  Sex: Female
  Weight: 90 kg

DRUGS (22)
  1. PHLEUM PRATENSE POLLEN [Suspect]
     Active Substance: PHLEUM PRATENSE POLLEN
     Indication: Product used for unknown indication
     Route: 023
     Dates: start: 20231016, end: 20231016
  2. STANDARDIZED MEADOW FESCUE GRASS POLLEN [Suspect]
     Active Substance: FESTUCA PRATENSIS POLLEN
     Route: 023
     Dates: start: 20231016, end: 20231016
  3. IVA ANNUA POLLEN [Suspect]
     Active Substance: IVA ANNUA POLLEN
     Route: 023
     Dates: start: 20231016, end: 20231016
  4. POLLENS - WEEDS, DOCK/SORREL MIX [Suspect]
     Active Substance: RUMEX ACETOSELLA POLLEN\RUMEX CRISPUS POLLEN
     Route: 023
     Dates: start: 20231016, end: 20231016
  5. COCKLEBUR POLLEN [Suspect]
     Active Substance: XANTHIUM STRUMARIUM POLLEN
     Route: 023
     Dates: start: 20231016, end: 20231016
  6. ENGLISH PLANTAIN POLLEN [Suspect]
     Active Substance: PLANTAGO LANCEOLATA POLLEN
     Route: 023
     Dates: start: 20231016, end: 20231016
  7. SHORT AND GIANT RAGWEED POLLEN MIX [Suspect]
     Active Substance: AMBROSIA ARTEMISIIFOLIA POLLEN\AMBROSIA TRIFIDA POLLEN
     Route: 023
     Dates: start: 20231016, end: 20231016
  8. JOHNSON GRASS POLLEN [Suspect]
     Active Substance: SORGHUM HALEPENSE POLLEN
     Route: 023
     Dates: start: 20231016, end: 20231016
  9. BAHIA GRASS POLLEN [Suspect]
     Active Substance: PASPALUM NOTATUM POLLEN
     Route: 023
     Dates: start: 20231016, end: 20231016
  10. RIVER BIRCH POLLEN [Suspect]
     Active Substance: BETULA NIGRA POLLEN
     Route: 023
     Dates: start: 20231016, end: 20231016
  11. RED MULBERRY POLLEN [Suspect]
     Active Substance: MORUS RUBRA POLLEN
     Route: 023
     Dates: start: 20231016, end: 20231016
  12. SWEET GUM POLLEN [Suspect]
     Active Substance: LIQUIDAMBAR STYRACIFLUA POLLEN
     Route: 023
     Dates: start: 20231016, end: 20231016
  13. WHITE ASH POLLEN [Suspect]
     Active Substance: FRAXINUS AMERICANA POLLEN
     Route: 023
     Dates: start: 20231016, end: 20231016
  14. EASTERN COTTONWOOD POLLEN [Suspect]
     Active Substance: POPULUS DELTOIDES POLLEN
     Route: 023
     Dates: start: 20231016, end: 20231016
  15. MAPLE BOX ELDER POLLEN MIX [Suspect]
     Active Substance: ACER NEGUNDO POLLEN\ACER SACCHARUM POLLEN
     Route: 023
     Dates: start: 20231016, end: 20231016
  16. AMERICAN SYCAMORE POLLEN [Suspect]
     Active Substance: PLATANUS OCCIDENTALIS POLLEN
     Route: 023
     Dates: start: 20231016, end: 20231016
  17. PECAN POLLEN [Suspect]
     Active Substance: CARYA ILLINOINENSIS POLLEN
     Route: 023
     Dates: start: 20231016, end: 20231016
  18. EASTERN OAK POLLEN MIX [Suspect]
     Active Substance: QUERCUS ALBA POLLEN\QUERCUS RUBRA POLLEN\QUERCUS VELUTINA POLLEN
     Route: 023
     Dates: start: 20231016, end: 20231016
  19. HORSE EPITHELIA [Suspect]
     Active Substance: EQUUS CABALLUS SKIN
     Route: 023
     Dates: start: 20231016, end: 20231016
  20. EPICOCCUM NIGRUM [Suspect]
     Active Substance: EPICOCCUM NIGRUM
     Route: 023
     Dates: start: 20231016, end: 20231016
  21. CANDIDA ALBICANS [Suspect]
     Active Substance: CANDIDA ALBICANS
     Route: 023
     Dates: start: 20231016, end: 20231016
  22. CURVULARIA SPICIFERA [Suspect]
     Active Substance: COCHLIOBOLUS SPICIFER
     Route: 023
     Dates: start: 20231016, end: 20231016

REACTIONS (1)
  - Lip oedema [Recovered/Resolved]

NARRATIVE: CASE EVENT DATE: 20231016
